FAERS Safety Report 26174619 (Version 1)
Quarter: 2025Q4

REPORT INFORMATION
  Report Type: Spontaneous
  Country: EU (occurrence: EU)
  Receive Date: 20251218
  Receipt Date: 20251218
  Transmission Date: 20260117
  Serious: Yes (Other)
  Sender: TEVA
  Company Number: None

PATIENT
  Age: 59 Year
  Sex: Female

DRUGS (13)
  1. ARIPIPRAZOLE [Suspect]
     Active Substance: ARIPIPRAZOLE
     Indication: Bipolar I disorder
     Dosage: ARIPIPRAZOLE TEVA 15 MG TABLETS; DOSAGE: 15 MG/12 HOURS, ARIPIPRAZOLE TEVA
     Route: 048
     Dates: start: 202510, end: 202511
  2. OMEGA-3-ACID ETHYL ESTERS [Concomitant]
     Active Substance: OMEGA-3-ACID ETHYL ESTERS
     Indication: Dyslipidaemia
     Dosage: OLEVIA*OMEGA POLYENOIC ACID 1000 MG SOFT CAPSULES; DOSAGE: 1000 MG/8 HOURS
     Route: 048
  3. SEROQUEL [Concomitant]
     Active Substance: QUETIAPINE FUMARATE
     Indication: Bipolar I disorder
     Dosage: SEROQUEL*QUETIAPINE FUMARATE 25 MG FILM-COATED TABLETS; DOSAGE: 25 MG/12 HOURS
     Route: 048
  4. XANAX [Concomitant]
     Active Substance: ALPRAZOLAM
     Indication: Bipolar I disorder
     Dosage: XANAX*ALPRAZOLAM 0.50 MG TABLETS; DOSAGE: 0.5 MG/DAY.
     Route: 048
  5. ISKIDROP [Concomitant]
     Indication: Cerebrovascular disorder
     Dosage: ISKIDROP*NIMODIPINE 30 MG/0.75 ML ORAL DROPS; DOSAGE: 5 DROPS/ 8 HOURS
     Route: 048
  6. BRINTELLIX [Concomitant]
     Active Substance: VORTIOXETINE HYDROBROMIDE
     Indication: Bipolar I disorder
     Dosage: BRINTELLIX*VORTIOXETINE HYDROBROMIDE 10 MG FILM-COATED TABLETS; DOSAGE: 10 MG/12 HOURS
     Route: 048
  7. LYRICA [Concomitant]
     Active Substance: PREGABALIN
     Indication: Bipolar I disorder
     Dosage: LYRICA*PREGABALIN 75 MG HARD CAPSULES; DOSAGE: 75 MG/8 HOURS
     Route: 048
  8. BROTIZOLAM [Concomitant]
     Active Substance: BROTIZOLAM
     Indication: Bipolar disorder
     Dosage: LENDORMIN*BROTIZOLAM 0.25 MG TABLETS; DOSAGE: 0.25 MG/DAY
     Route: 048
  9. VALPROATE SODIUM [Concomitant]
     Active Substance: VALPROATE SODIUM
     Indication: Bipolar I disorder
     Dosage: DEPAKIN CHRONO*VALPROIC ACID + SODIUM VALPROATE 500 MG PROLONGED-RELEASE TABLETS; DOSAGE: 500 MG/...
     Route: 048
  10. GLYXAMBI [Concomitant]
     Active Substance: EMPAGLIFLOZIN\LINAGLIPTIN
     Indication: Type 2 diabetes mellitus
     Dosage: GLYXAMBI*LINAGLIPTIN + EMPAGLIFLOZIN 10 MG/5 MG FILM-COATED TABLETS; DOSAGE: 1 TABLET/DAY
     Route: 048
  11. ASPIRIN [Concomitant]
     Active Substance: ASPIRIN
     Indication: Carotid arteriosclerosis
     Dosage: CARDIOASPIRIN*ACETYLSALICYLIC ACID 100 MG GASTRO-RESISTANT TABLETS; DOSAGE: 100 MG/DAY
     Route: 048
  12. HALDOL [Concomitant]
     Active Substance: HALOPERIDOL
     Indication: Bipolar I disorder
     Dosage: HALDOL*HALOPERIDOL 2 MG/ML ORAL DROPS SOLUTION; DOSAGE: 15 DROPS/ 8 HOURS
     Route: 048
  13. HIMAVAT [Concomitant]
     Indication: Dyslipidaemia
     Dosage: HIMAVAT*EZETIMIBE + ATORVASTATIN 10 MG/40 MG TABLETS; DOSAGE: 1 TABLET/DAY.
     Route: 048

REACTIONS (5)
  - Hallucination, auditory [Recovered/Resolved]
  - Tremor [Recovered/Resolved]
  - Vertigo [Recovered/Resolved]
  - Tremor [Recovered/Resolved]
  - Nausea [Recovered/Resolved]

NARRATIVE: CASE EVENT DATE: 20251001
